FAERS Safety Report 10013233 (Version 2)
Quarter: 2014Q1

REPORT INFORMATION
  Report Type: Spontaneous
  Country: CA (occurrence: CA)
  Receive Date: 20140314
  Receipt Date: 20140314
  Transmission Date: 20141002
  Serious: Yes (Other)
  Sender: FDA-Public Use
  Company Number: CA-BAXTER-2014BAX011630

PATIENT
  Age: 75 Year
  Sex: Male

DRUGS (2)
  1. EXTRANEAL [Suspect]
     Indication: PERITONEAL DIALYSIS
     Dosage: 1 BAG
     Route: 033
  2. INSULIN [Concomitant]
     Indication: GLUCOSE TOLERANCE IMPAIRED

REACTIONS (7)
  - Transient ischaemic attack [Unknown]
  - Headache [Unknown]
  - Eye pain [Unknown]
  - Fall [Not Recovered/Not Resolved]
  - Loss of consciousness [Unknown]
  - Amnesia [Not Recovered/Not Resolved]
  - Balance disorder [Not Recovered/Not Resolved]
